FAERS Safety Report 9393176 (Version 1)
Quarter: 2013Q3

REPORT INFORMATION
  Report Type: Spontaneous
  Country: US (occurrence: US)
  Receive Date: 20130710
  Receipt Date: 20130710
  Transmission Date: 20140515
  Serious: No
  Sender: FDA-Public Use
  Company Number: US-TEVA-418032USA

PATIENT
  Age: 74 Year
  Sex: Female

DRUGS (1)
  1. QNASL [Suspect]
     Dates: start: 20130703

REACTIONS (2)
  - Burning sensation mucosal [Not Recovered/Not Resolved]
  - Tremor [Not Recovered/Not Resolved]
